FAERS Safety Report 8002226-7 (Version None)
Quarter: 2011Q4

REPORT INFORMATION
  Report Type: 
  Country: None (occurrence: None)
  Receive Date: 20111219
  Receipt Date: 20111205
  Transmission Date: 20120403
  Serious: Yes (Life-Threatening, Hospitalization, Other)
  Sender: FDA-Public Use
  Company Number: 2011MA017454

PATIENT
  Age: 84 Year
  Sex: Male

DRUGS (5)
  1. BENIDIPINE HYDROCHLORIDE [Concomitant]
  2. ROSUVASTATIN CALCIUM [Concomitant]
  3. INDAPAMIDE [Suspect]
     Indication: HYPERTENSION
  4. L-GLUTAMINE/ALUMINUM HYDROXIDE-SODIUM BICARBONATE COPRECIPITATE/PIPETH [Concomitant]
  5. FAMOTIDINE [Concomitant]

REACTIONS (16)
  - VENTRICULAR FLUTTER [None]
  - RHABDOMYOLYSIS [None]
  - HYPONATRAEMIA [None]
  - DEHYDRATION [None]
  - VENTRICULAR EXTRASYSTOLES [None]
  - HAEMATOCRIT DECREASED [None]
  - HYPOKALAEMIA [None]
  - SUPRAVENTRICULAR EXTRASYSTOLES [None]
  - BLOOD MAGNESIUM INCREASED [None]
  - RESPIRATORY ARREST [None]
  - PLEURAL EFFUSION [None]
  - CARDIOPULMONARY FAILURE [None]
  - METABOLIC ALKALOSIS [None]
  - NASOPHARYNGITIS [None]
  - BUNDLE BRANCH BLOCK RIGHT [None]
  - DECREASED APPETITE [None]
